FAERS Safety Report 24640984 (Version 1)
Quarter: 2024Q4

REPORT INFORMATION
  Report Type: Spontaneous
  Country: HK (occurrence: HK)
  Receive Date: 20241120
  Receipt Date: 20241120
  Transmission Date: 20250114
  Serious: Yes (Other)
  Sender: ALEXION PHARMACEUTICALS
  Company Number: HK-ASTRAZENECA-202411CHN007587HK

PATIENT
  Age: 62 Year

DRUGS (4)
  1. OSIMERTINIB [Suspect]
     Active Substance: OSIMERTINIB
     Indication: Lung adenocarcinoma
     Dosage: UNK
  2. OSIMERTINIB [Suspect]
     Active Substance: OSIMERTINIB
     Dosage: UNK
  3. OSIMERTINIB [Suspect]
     Active Substance: OSIMERTINIB
     Dosage: UNK
  4. OSIMERTINIB [Suspect]
     Active Substance: OSIMERTINIB
     Dosage: UNK

REACTIONS (4)
  - Malignant neoplasm progression [Unknown]
  - Acquired gene mutation [Unknown]
  - Drug resistance [Unknown]
  - Therapy partial responder [Unknown]
